FAERS Safety Report 8927207 (Version 1)
Quarter: 2012Q4

REPORT INFORMATION
  Report Type: 
  Country: BR (occurrence: BR)
  Receive Date: 20121127
  Receipt Date: 20121127
  Transmission Date: 20130627
  Serious: Yes (Other)
  Sender: FDA-Public Use
  Company Number: BR-SANOFI-AVENTIS-2012SA085667

PATIENT
  Age: 52 Year
  Sex: Male
  Weight: 75 kg

DRUGS (5)
  1. LANTUS [Suspect]
     Indication: DIABETES
     Route: 058
     Dates: start: 2008
  2. INSULIN PEN NOS [Suspect]
     Indication: DEVICE THERAPY
     Dates: start: 201202
  3. MULTIVITAMINS W/MINERALS [Concomitant]
     Indication: NUTRITIONAL SUPPORT
     Route: 048
  4. FERRIC HYDROXIDE POLYMALTOSE [Concomitant]
     Indication: ANEMIA
     Dosage: 1 ampoule 1 XW
     Route: 030
  5. FOLIC ACID [Concomitant]
     Indication: NUTRITIONAL SUPPORT
     Route: 048

REACTIONS (3)
  - Renal impairment [Unknown]
  - Dizziness [Unknown]
  - Hyperglycaemia [Unknown]
